FAERS Safety Report 5026833-9 (Version None)
Quarter: 2006Q2

REPORT INFORMATION
  Report Type: 
  Country: None (occurrence: None)
  Receive Date: 20060609
  Receipt Date: 20060601
  Transmission Date: 20061013
  Serious: Yes (Other)
  Sender: FDA-Public Use
  Company Number: 230245K06USA

PATIENT
  Age: 32 Year
  Sex: Female
  Weight: 58.1 kg

DRUGS (6)
  1. REBIF [Suspect]
     Indication: MULTIPLE SCLEROSIS
     Dosage: SEE IMAGE
     Route: 058
     Dates: start: 20050701, end: 20050819
  2. REBIF [Suspect]
     Indication: MULTIPLE SCLEROSIS
     Dosage: SEE IMAGE
     Route: 058
     Dates: start: 20060124
  3. ADDERALL (OBETROL) [Concomitant]
  4. APRI (MARVELON) [Concomitant]
  5. CELEXA [Concomitant]
  6. LAMICTAL [Concomitant]

REACTIONS (6)
  - CONSTIPATION [None]
  - FATIGUE [None]
  - HOT FLUSH [None]
  - NIGHT SWEATS [None]
  - PRURITUS [None]
  - SARCOIDOSIS [None]
